FAERS Safety Report 24315069 (Version 3)
Quarter: 2024Q4

REPORT INFORMATION
  Report Type: Report from Study
  Country: US (occurrence: US)
  Receive Date: 20240913
  Receipt Date: 20241010
  Transmission Date: 20250115
  Serious: Yes (Other)
  Sender: LEO PHARM
  Company Number: US-LEO Pharma-372996

PATIENT
  Age: 73 Year
  Sex: Female

DRUGS (1)
  1. ADBRY [Suspect]
     Active Substance: TRALOKINUMAB-LDRM
     Indication: Dermatitis atopic
     Dates: start: 202405, end: 202408

REACTIONS (6)
  - Madarosis [Unknown]
  - Alopecia [Unknown]
  - Pruritus [Unknown]
  - Cutaneous T-cell lymphoma [Unknown]
  - Drug ineffective [Unknown]
  - Condition aggravated [Unknown]

NARRATIVE: CASE EVENT DATE: 20240701
